FAERS Safety Report 5190085-X (Version None)
Quarter: 2006Q4

REPORT INFORMATION
  Report Type: 
  Country: None (occurrence: None)
  Receive Date: 20061222
  Receipt Date: 20061215
  Transmission Date: 20070319
  Serious: Yes (Life-Threatening)
  Sender: FDA-Public Use
  Company Number: BE-JNJFOC-20061105425

PATIENT
  Sex: Female

DRUGS (1)
  1. SPORANOX [Suspect]
     Indication: ONYCHOMYCOSIS
     Dosage: 2 CAPSULES TWICE A DAY FOR 1 WEEK/MONTH (PULSE THERAPY)
     Route: 048

REACTIONS (4)
  - ANGIONEUROTIC OEDEMA [None]
  - LIP SWELLING [None]
  - SYNCOPE [None]
  - VASCULITIS [None]
